FAERS Safety Report 4510594-3 (Version None)
Quarter: 2004Q4

REPORT INFORMATION
  Report Type: 
  Country: None (occurrence: None)
  Receive Date: 20041119
  Receipt Date: 20041102
  Transmission Date: 20050328
  Serious: Yes (Hospitalization)
  Sender: FDA-Public Use
  Company Number: 9248

PATIENT
  Age: 73 Year
  Sex: Female

DRUGS (9)
  1. METHOTREXATE [Suspect]
     Dosage: 20 MG WEEKLY, SC
     Route: 058
  2. ETANERCEPT [Suspect]
     Dosage: 20 MG 2/WK, SC
     Route: 058
  3. PREDNISOLONE [Concomitant]
  4. LEVOTHYROXINE SODIUM [Concomitant]
  5. PANTOPRAZOLE [Concomitant]
  6. ALENDRONATE SODIUM [Concomitant]
  7. ROFECOXIB [Concomitant]
  8. CALCIUM FOLINATE [Concomitant]
  9. CALCIUM CARBONATE [Concomitant]

REACTIONS (10)
  - ACUTE RESPIRATORY FAILURE [None]
  - ANXIETY [None]
  - DELIRIUM [None]
  - DYSPHAGIA [None]
  - GASTROOESOPHAGEAL REFLUX DISEASE [None]
  - HYPERGLYCAEMIA [None]
  - LUNG DISORDER [None]
  - ORAL CANDIDIASIS [None]
  - PNEUMONIA ASPIRATION [None]
  - URINARY RETENTION [None]
